FAERS Safety Report 9941288 (Version 1)
Quarter: 2014Q1

REPORT INFORMATION
  Report Type: Report from Study
  Country: US (occurrence: US)
  Receive Date: 20140303
  Receipt Date: 20140303
  Transmission Date: 20141002
  Serious: No
  Sender: FDA-Public Use
  Company Number: US-ABBVIE-13P-163-1042085-00

PATIENT
  Sex: Female

DRUGS (1)
  1. HUMIRA [Suspect]
     Indication: CROHN^S DISEASE
     Dates: start: 20120404

REACTIONS (4)
  - Mass [Unknown]
  - Dyspnoea [Unknown]
  - Abdominal distension [Unknown]
  - Musculoskeletal chest pain [Unknown]
